FAERS Safety Report 14500077 (Version 1)
Quarter: 2018Q1

REPORT INFORMATION
  Report Type: Not Available
  Country: US (occurrence: US)
  Receive Date: 20180207
  Receipt Date: 20180207
  Transmission Date: 20180509
  Serious: No
  Sender: FDA-Public Use
  Company Number: US-FOUNDATIONCONSUMERHC-2017-US-014136

PATIENT
  Age: 22 Year
  Sex: Female
  Weight: 79.83 kg

DRUGS (1)
  1. PLAN B ONE-STEP [Suspect]
     Active Substance: LEVONORGESTREL
     Route: 048
     Dates: start: 201702, end: 20171127

REACTIONS (8)
  - Breast tenderness [Unknown]
  - Fatigue [Unknown]
  - Menstrual disorder [Recovered/Resolved]
  - Menstrual disorder [Recovered/Resolved]
  - Menopausal symptoms [Recovered/Resolved]
  - Muscle spasms [Recovered/Resolved]
  - Menstrual disorder [Unknown]
  - Headache [Recovered/Resolved]

NARRATIVE: CASE EVENT DATE: 201702
